FAERS Safety Report 8367296-5 (Version None)
Quarter: 2012Q2

REPORT INFORMATION
  Report Type: 
  Country: None (occurrence: None)
  Receive Date: 20120517
  Receipt Date: 20120508
  Transmission Date: 20120825
  Serious: Yes (Other)
  Sender: FDA-Public Use
  Company Number: JP-VERTEX PHARMACEUTICALS INC.-AE-2012-006839

PATIENT
  Age: 50 Year
  Sex: Female

DRUGS (14)
  1. RIBAVIRIN [Concomitant]
     Indication: HEPATITIS C
     Route: 048
     Dates: start: 20120314, end: 20120403
  2. LENDORMIN D [Concomitant]
     Route: 048
  3. ASPIRIN [Concomitant]
     Route: 048
     Dates: start: 20120319, end: 20120321
  4. ZADITEN [Concomitant]
     Route: 045
     Dates: start: 20120319, end: 20120326
  5. ZOLPIDEM [Concomitant]
     Route: 048
  6. RIBAVIRIN [Concomitant]
     Route: 048
     Dates: start: 20120404, end: 20120424
  7. PEGINTERFERON ALFA-2B [Concomitant]
     Indication: HEPATITIS C
     Route: 051
     Dates: start: 20120314, end: 20120425
  8. TELAVIC (TELAPREVIR) [Suspect]
     Indication: HEPATITIS C
     Route: 048
     Dates: start: 20120314, end: 20120501
  9. ALOSENN [Concomitant]
     Route: 048
  10. PEGINTERFERON ALFA-2B [Concomitant]
     Route: 051
     Dates: start: 20120502
  11. TELAVIC (TELAPREVIR) [Suspect]
     Route: 048
     Dates: start: 20120502
  12. NABOL SR [Concomitant]
     Route: 048
  13. FAMOTIDINE [Concomitant]
     Route: 048
     Dates: start: 20120314, end: 20120327
  14. NABOL SR [Concomitant]
     Route: 048
     Dates: start: 20120314

REACTIONS (2)
  - NEUTROPHIL COUNT DECREASED [None]
  - WHITE BLOOD CELL COUNT DECREASED [None]
